FAERS Safety Report 9074474 (Version 1)
Quarter: 2013Q1

REPORT INFORMATION
  Report Type: Report from Study
  Country: US (occurrence: US)
  Receive Date: 20130129
  Receipt Date: 20130129
  Transmission Date: 20140127
  Serious: No
  Sender: FDA-Public Use
  Company Number: US-ABBOTT-12P-163-0925776-00

PATIENT
  Age: 17 Year
  Sex: Female

DRUGS (4)
  1. HUMIRA 40 MG/0.8 ML PEN [Suspect]
     Indication: PSORIASIS
     Dates: start: 20120218
  2. OPANO [Suspect]
     Indication: PRODUCT USED FOR UNKNOWN INDICATION
     Route: 045
  3. OPANA [Concomitant]
     Indication: PRODUCT USED FOR UNKNOWN INDICATION
     Dosage: 4 TABLETS WEEKLY
  4. FOLIC ACID [Concomitant]
     Indication: CROHN^S DISEASE
     Dosage: DAILY

REACTIONS (6)
  - Somnolence [Recovered/Resolved]
  - Feeling abnormal [Recovered/Resolved]
  - Coagulopathy [Not Recovered/Not Resolved]
  - Injection site haemorrhage [Unknown]
  - Hangnail [Unknown]
  - Nail bed bleeding [Unknown]
